FAERS Safety Report 25480979 (Version 1)
Quarter: 2025Q2

REPORT INFORMATION
  Report Type: Spontaneous
  Country: JP (occurrence: JP)
  Receive Date: 20250625
  Receipt Date: 20250625
  Transmission Date: 20250716
  Serious: Yes (Hospitalization)
  Sender: ABBVIE
  Company Number: JP-ABBVIE-6343374

PATIENT
  Age: 18 Year

DRUGS (1)
  1. RINVOQ [Suspect]
     Active Substance: UPADACITINIB
     Indication: Product used for unknown indication
     Route: 048

REACTIONS (6)
  - Rectal perforation [Recovered/Resolved]
  - C-reactive protein increased [Not Recovered/Not Resolved]
  - Blood albumin decreased [Unknown]
  - Pyrexia [Recovering/Resolving]
  - Prothrombin time prolonged [Unknown]
  - Protein total decreased [Unknown]

NARRATIVE: CASE EVENT DATE: 20250616
